FAERS Safety Report 8317777 (Version 5)
Quarter: 2013Q2

REPORT INFORMATION
  Report Type: Spontaneous
  Country: US (occurrence: US)
  Receive Date: 20120102
  Receipt Date: 20130408
  Transmission Date: 20140414
  Serious: Yes (Hospitalization, Other)
  Sender: FDA-Public Use
  Company Number: US-ROCHE-1025812

PATIENT
  Age: 20 Year
  Sex: Female
  Weight: 59 kg

DRUGS (3)
  1. ACCUTANE [Suspect]
     Indication: ACNE
     Route: 065
     Dates: start: 19980326, end: 199901
  2. IBUPROFEN [Concomitant]
  3. YASMIN [Concomitant]
     Route: 048
     Dates: end: 200810

REACTIONS (7)
  - Colitis ulcerative [Unknown]
  - Intestinal anastomosis complication [Unknown]
  - Small intestinal obstruction [Unknown]
  - Inflammatory bowel disease [Unknown]
  - Oral herpes [Unknown]
  - Depression [Unknown]
  - Irritable bowel syndrome [Unknown]
